FAERS Safety Report 25819843 (Version 1)
Quarter: 2025Q3

REPORT INFORMATION
  Report Type: Spontaneous
  Country: EU (occurrence: EU)
  Receive Date: 20250918
  Receipt Date: 20250918
  Transmission Date: 20251021
  Serious: Yes (Hospitalization)
  Sender: MERCK SHARP & DOHME LLC
  Company Number: None

PATIENT
  Age: 54 Year
  Sex: Male
  Weight: 80 kg

DRUGS (8)
  1. DAPTOMYCIN [Suspect]
     Active Substance: DAPTOMYCIN
     Indication: Mediastinitis
     Route: 042
     Dates: start: 20250508, end: 20250519
  2. LEVOFLOXACIN [Concomitant]
     Active Substance: LEVOFLOXACIN
  3. MEROPENEM ANHYDROUS [Suspect]
     Active Substance: MEROPENEM ANHYDROUS
     Indication: Mediastinitis
     Route: 042
     Dates: start: 20250508, end: 20250519
  4. AMOXICILLIN [Concomitant]
     Active Substance: AMOXICILLIN
  5. LINEZOLID [Concomitant]
     Active Substance: LINEZOLID
  6. CLAVULANIC ACID [Concomitant]
     Active Substance: CLAVULANIC ACID
  7. PIPERACILLIN TAZOBACTAM VIATRIS 4 g/0.5 g, powder for solution for ... [Concomitant]
  8. BACTRIM [Suspect]
     Active Substance: SULFAMETHOXAZOLE\TRIMETHOPRIM
     Indication: Antibiotic therapy
     Dosage: 6 DOSAGE FORM, EVERY 1 DAY
     Route: 042
     Dates: start: 20250506, end: 20250513

REACTIONS (3)
  - Eosinophilia [Recovering/Resolving]
  - Liver function test abnormal [Recovering/Resolving]
  - Rash morbilliform [Recovering/Resolving]

NARRATIVE: CASE EVENT DATE: 20250518
